FAERS Safety Report 4570897-3 (Version None)
Quarter: 2005Q1

REPORT INFORMATION
  Report Type: 
  Country: None (occurrence: None)
  Receive Date: 20050204
  Receipt Date: 20050125
  Transmission Date: 20050727
  Serious: Yes (Disabling, Other)
  Sender: FDA-Public Use
  Company Number: US-MERCK-0501USA03627

PATIENT
  Age: 64 Year
  Sex: Male
  Weight: 91 kg

DRUGS (3)
  1. ZETIA [Suspect]
     Indication: TYPE II HYPERLIPIDAEMIA
     Route: 048
     Dates: start: 20050101, end: 20050119
  2. ASPIRIN [Concomitant]
     Route: 048
     Dates: start: 20020101
  3. [THERAPY UNSPECIFIED] [Concomitant]
     Route: 048
     Dates: start: 20040801

REACTIONS (2)
  - PRURITUS [None]
  - URTICARIA [None]
